FAERS Safety Report 10095803 (Version 1)
Quarter: 2014Q2

REPORT INFORMATION
  Report Type: Spontaneous
  Country: US (occurrence: US)
  Receive Date: 20140422
  Receipt Date: 20140422
  Transmission Date: 20141212
  Serious: No
  Sender: FDA-Public Use
  Company Number: US-GILEAD-2013-0074732

PATIENT
  Age: 52 Year
  Sex: Female

DRUGS (1)
  1. LETAIRIS [Suspect]
     Indication: CARDIAC DISORDER
     Route: 048
     Dates: start: 20130408, end: 20130413

REACTIONS (6)
  - Malaise [Unknown]
  - Movement disorder [Unknown]
  - Pain [Unknown]
  - Headache [Unknown]
  - Dyspnoea [Unknown]
  - Fluid retention [Unknown]
